FAERS Safety Report 24958688 (Version 1)
Quarter: 2025Q1

REPORT INFORMATION
  Report Type: Spontaneous
  Country: PL (occurrence: PL)
  Receive Date: 20250212
  Receipt Date: 20250212
  Transmission Date: 20250409
  Serious: Yes (Other)
  Sender: AMGEN
  Company Number: PL-AMGEN-POLSP2025023958

PATIENT

DRUGS (5)
  1. PEGFILGRASTIM [Suspect]
     Active Substance: PEGFILGRASTIM
     Indication: Prophylaxis
     Route: 058
  2. METHOTREXATE [Concomitant]
     Active Substance: METHOTREXATE
     Indication: Bladder transitional cell carcinoma
     Dosage: 30 MILLIGRAM/SQ. METER, Q2WK (ON DAY ONE OF THE BIWEEKLY CYCLES)
     Route: 065
  3. VINBLASTINE [Concomitant]
     Active Substance: VINBLASTINE
     Indication: Bladder transitional cell carcinoma
     Dosage: 3 MILLIGRAM/SQ. METER, Q2WK (ON DAY ONE OF THE BIWEEKLY CYCLES)
     Route: 065
  4. DOXORUBICIN [Concomitant]
     Active Substance: DOXORUBICIN
     Indication: Bladder transitional cell carcinoma
     Dosage: 30 MILLIGRAM/SQ. METER, Q2WK (ON DAY ONE OF THE BIWEEKLY CYCLES)
     Route: 065
  5. CISPLATIN [Concomitant]
     Active Substance: CISPLATIN
     Indication: Bladder transitional cell carcinoma
     Dosage: 70 MILLIGRAM/SQ. METER, Q2WK (ON DAY ONE OF THE BIWEEKLY CYCLES)
     Route: 065

REACTIONS (2)
  - Anaemia [Unknown]
  - Radical cystectomy [Unknown]
